FAERS Safety Report 9586136 (Version 2)
Quarter: 2014Q1

REPORT INFORMATION
  Report Type: Spontaneous
  Country: FR (occurrence: FR)
  Receive Date: 20131003
  Receipt Date: 20140210
  Transmission Date: 20141002
  Serious: Yes (Hospitalization, Other)
  Sender: FDA-Public Use
  Company Number: FR-ELI_LILLY_AND_COMPANY-FR201309007606

PATIENT
  Age: 82 Year
  Sex: Male

DRUGS (8)
  1. PROZAC [Suspect]
     Dosage: 20 MG, QD
     Route: 048
     Dates: end: 20130825
  2. KARDEGIC [Suspect]
     Dosage: 160 MG, QD
     Route: 048
     Dates: start: 20130714, end: 20130823
  3. KARDEGIC [Suspect]
     Dosage: 75 MG, QD
     Route: 048
  4. ARIXTRA [Suspect]
     Dosage: UNK
     Route: 048
     Dates: start: 20130730, end: 20130823
  5. PRADAXA [Suspect]
     Indication: ATRIAL FIBRILLATION
     Dosage: 110 MG, BID
     Dates: start: 20130823, end: 20130825
  6. SOTALEX [Concomitant]
     Dosage: 40 MG, BID
     Dates: start: 20130823, end: 20130825
  7. COVERSYL [Concomitant]
     Dosage: 5 MG, QD
     Dates: start: 20130823, end: 20130825
  8. NATISPRAY [Concomitant]
     Dosage: UNK
     Dates: end: 20130825

REACTIONS (3)
  - Cerebral haematoma [Unknown]
  - Ischaemic stroke [Recovered/Resolved with Sequelae]
  - Atrial fibrillation [Unknown]
